FAERS Safety Report 18653291 (Version 3)
Quarter: 2021Q1

REPORT INFORMATION
  Report Type: Spontaneous
  Country: BE (occurrence: BE)
  Receive Date: 20201223
  Receipt Date: 20210224
  Transmission Date: 20210419
  Serious: Yes (Other)
  Sender: FDA-Public Use
  Company Number: BE-BEH-2020125584

PATIENT
  Sex: Female
  Weight: 69 kg

DRUGS (30)
  1. HAEMATE P [Suspect]
     Active Substance: ANTIHEMOPHILIC FACTOR HUMAN
     Indication: VON WILLEBRAND^S DISEASE
     Dosage: 6000 INTERNATIONAL UNIT, TOT
     Route: 042
     Dates: start: 20200909, end: 20200909
  2. HAEMATE P [Suspect]
     Active Substance: ANTIHEMOPHILIC FACTOR HUMAN
     Dosage: 2000 INTERNATIONAL UNIT, TOT
     Route: 042
     Dates: start: 20201201, end: 20201201
  3. HAEMATE P [Suspect]
     Active Substance: ANTIHEMOPHILIC FACTOR HUMAN
     Dosage: 2000 INTERNATIONAL UNIT, TOT
     Route: 042
     Dates: start: 20201202, end: 20201202
  4. HAEMATE P [Suspect]
     Active Substance: ANTIHEMOPHILIC FACTOR HUMAN
     Dosage: 2000 INTERNATIONAL UNIT, TOT
     Route: 042
     Dates: start: 20200914, end: 20200914
  5. HAEMATE P [Suspect]
     Active Substance: ANTIHEMOPHILIC FACTOR HUMAN
     Dosage: 2000 INTERNATIONAL UNIT, TOT
     Route: 042
     Dates: start: 20200915, end: 20200915
  6. HAEMATE P [Suspect]
     Active Substance: ANTIHEMOPHILIC FACTOR HUMAN
     Dosage: 4000 INTERNATIONAL UNIT, TOT
     Route: 042
     Dates: start: 20201128, end: 20201128
  7. HAEMATE P [Suspect]
     Active Substance: ANTIHEMOPHILIC FACTOR HUMAN
     Dosage: 2000 INTERNATIONAL UNIT, TOT
     Route: 042
     Dates: start: 20201201, end: 20201201
  8. HAEMATE P [Suspect]
     Active Substance: ANTIHEMOPHILIC FACTOR HUMAN
     Indication: VON WILLEBRAND^S DISEASE
     Dosage: 6000 INTERNATIONAL UNIT, TOT
     Route: 042
     Dates: start: 20200909, end: 20200909
  9. HAEMATE P [Suspect]
     Active Substance: ANTIHEMOPHILIC FACTOR HUMAN
     Dosage: 2000 INTERNATIONAL UNIT, TOT
     Route: 042
     Dates: start: 20200911, end: 20200911
  10. HAEMATE P [Suspect]
     Active Substance: ANTIHEMOPHILIC FACTOR HUMAN
     Dosage: 2000 INTERNATIONAL UNIT, TOT
     Route: 042
     Dates: start: 20200914, end: 20200914
  11. HAEMATE P [Suspect]
     Active Substance: ANTIHEMOPHILIC FACTOR HUMAN
     Dosage: 8000 INTERNATIONAL UNIT, TOT
     Route: 042
     Dates: start: 20201125, end: 20201125
  12. HAEMATE P [Suspect]
     Active Substance: ANTIHEMOPHILIC FACTOR HUMAN
     Dosage: 6000 INTERNATIONAL UNIT, TOT
     Route: 042
     Dates: start: 20201126, end: 20201126
  13. HAEMATE P [Suspect]
     Active Substance: ANTIHEMOPHILIC FACTOR HUMAN
     Dosage: 4000 INTERNATIONAL UNIT, TOT
     Route: 042
     Dates: start: 20201127, end: 20201127
  14. HAEMATE P [Suspect]
     Active Substance: ANTIHEMOPHILIC FACTOR HUMAN
     Dosage: 2000 INTERNATIONAL UNIT, TOT
     Route: 042
     Dates: start: 20201130, end: 20201130
  15. HAEMATE P [Suspect]
     Active Substance: ANTIHEMOPHILIC FACTOR HUMAN
     Dosage: 2000 INTERNATIONAL UNIT, TOT
     Route: 042
     Dates: start: 20200911, end: 20200911
  16. HAEMATE P [Suspect]
     Active Substance: ANTIHEMOPHILIC FACTOR HUMAN
     Dosage: 4000 INTERNATIONAL UNIT, TOT
     Route: 042
     Dates: start: 20201127, end: 20201127
  17. HAEMATE P [Suspect]
     Active Substance: ANTIHEMOPHILIC FACTOR HUMAN
     Dosage: 2000 INTERNATIONAL UNIT, TOT
     Route: 042
     Dates: start: 20201129, end: 20201129
  18. HAEMATE P [Suspect]
     Active Substance: ANTIHEMOPHILIC FACTOR HUMAN
     Dosage: 3000 INTERNATIONAL UNIT, TOT
     Route: 042
     Dates: start: 20200910, end: 20200910
  19. HAEMATE P [Suspect]
     Active Substance: ANTIHEMOPHILIC FACTOR HUMAN
     Dosage: 2000 INTERNATIONAL UNIT, TOT
     Route: 042
     Dates: start: 20200912, end: 20200912
  20. HAEMATE P [Suspect]
     Active Substance: ANTIHEMOPHILIC FACTOR HUMAN
     Dosage: 2000 INTERNATIONAL UNIT, TOT
     Route: 042
     Dates: start: 20200913, end: 20200913
  21. HAEMATE P [Suspect]
     Active Substance: ANTIHEMOPHILIC FACTOR HUMAN
     Dosage: 2000 INTERNATIONAL UNIT, TOT
     Route: 042
     Dates: start: 20200915, end: 20200915
  22. HAEMATE P [Suspect]
     Active Substance: ANTIHEMOPHILIC FACTOR HUMAN
     Dosage: 4000 INTERNATIONAL UNIT, TOT
     Route: 042
     Dates: start: 20201128, end: 20201128
  23. HAEMATE P [Suspect]
     Active Substance: ANTIHEMOPHILIC FACTOR HUMAN
     Dosage: 2000 INTERNATIONAL UNIT, TOT
     Route: 042
     Dates: start: 20201202, end: 20201202
  24. HAEMATE P [Suspect]
     Active Substance: ANTIHEMOPHILIC FACTOR HUMAN
     Dosage: 3000 INTERNATIONAL UNIT, TOT
     Route: 042
     Dates: start: 20200910, end: 20200910
  25. HAEMATE P [Suspect]
     Active Substance: ANTIHEMOPHILIC FACTOR HUMAN
     Dosage: 2000 INTERNATIONAL UNIT, TOT
     Route: 042
     Dates: start: 20200912, end: 20200912
  26. HAEMATE P [Suspect]
     Active Substance: ANTIHEMOPHILIC FACTOR HUMAN
     Dosage: 8000 INTERNATIONAL UNIT, TOT
     Route: 042
     Dates: start: 20201125, end: 20201125
  27. HAEMATE P [Suspect]
     Active Substance: ANTIHEMOPHILIC FACTOR HUMAN
     Dosage: 6000 INTERNATIONAL UNIT, TOT
     Route: 042
     Dates: start: 20201126, end: 20201126
  28. HAEMATE P [Suspect]
     Active Substance: ANTIHEMOPHILIC FACTOR HUMAN
     Dosage: 2000 INTERNATIONAL UNIT, TOT
     Route: 042
     Dates: start: 20201129, end: 20201129
  29. HAEMATE P [Suspect]
     Active Substance: ANTIHEMOPHILIC FACTOR HUMAN
     Dosage: 2000 INTERNATIONAL UNIT, TOT
     Route: 042
     Dates: start: 20200913, end: 20200913
  30. HAEMATE P [Suspect]
     Active Substance: ANTIHEMOPHILIC FACTOR HUMAN
     Dosage: 2000 INTERNATIONAL UNIT, TOT
     Route: 042
     Dates: start: 20201130, end: 20201130

REACTIONS (3)
  - Anaemia [Unknown]
  - Haemorrhage [Unknown]
  - Drug ineffective [Recovered/Resolved]

NARRATIVE: CASE EVENT DATE: 20200911
